FAERS Safety Report 12177069 (Version 1)
Quarter: 2016Q1

REPORT INFORMATION
  Report Type: Spontaneous
  Country: SE (occurrence: SE)
  Receive Date: 20160314
  Receipt Date: 20160314
  Transmission Date: 20160526
  Serious: Yes (Death)
  Sender: FDA-Public Use
  Company Number: SE-CIPLA LTD.-2016SE02291

PATIENT

DRUGS (4)
  1. CITALOPRAM [Suspect]
     Active Substance: CITALOPRAM HYDROBROMIDE
     Dosage: UNK
     Route: 065
  2. PARACETAMOL [Suspect]
     Active Substance: ACETAMINOPHEN
     Dosage: UNK
     Route: 065
  3. DEXTROPROPOXYPHEN [Suspect]
     Active Substance: PROPOXYPHENE
     Dosage: UNK
     Route: 065
  4. CLOMETIAZOLE [Suspect]
     Active Substance: CLOMETHIAZOLE
     Dosage: UNK
     Route: 065

REACTIONS (2)
  - Accident [Fatal]
  - Thermal burn [Fatal]
